FAERS Safety Report 20416410 (Version 1)
Quarter: 2022Q1

REPORT INFORMATION
  Report Type: Spontaneous
  Country: US (occurrence: None)
  Receive Date: 20220201
  Receipt Date: 20220201
  Transmission Date: 20220423
  Serious: Yes (Other)
  Sender: FDA-Public Use
  Company Number: None

PATIENT
  Age: 22 Year
  Sex: Female
  Weight: 74.25 kg

DRUGS (4)
  1. EMGALITY [Suspect]
     Active Substance: GALCANEZUMAB-GNLM
     Indication: Migraine
     Dosage: OTHER FREQUENCY : 1 PER MONTH;?
     Route: 058
     Dates: start: 20200901, end: 20220101
  2. amjovi [Concomitant]
  3. MIRENA [Concomitant]
     Active Substance: LEVONORGESTREL
  4. XYZAL [Concomitant]
     Active Substance: LEVOCETIRIZINE DIHYDROCHLORIDE

REACTIONS (8)
  - Swelling face [None]
  - Fatigue [None]
  - Endometriosis [None]
  - Generalised oedema [None]
  - Peripheral swelling [None]
  - Weight increased [None]
  - Arthralgia [None]
  - Vomiting [None]

NARRATIVE: CASE EVENT DATE: 20220101
